FAERS Safety Report 25542627 (Version 4)
Quarter: 2025Q3

REPORT INFORMATION
  Report Type: Spontaneous
  Country: US (occurrence: US)
  Receive Date: 20250711
  Receipt Date: 20250811
  Transmission Date: 20251020
  Serious: No
  Sender: HETERO
  Company Number: US-HETERO-HET2025US03709

PATIENT

DRUGS (1)
  1. ESOMEPRAZOLE [Suspect]
     Active Substance: ESOMEPRAZOLE
     Indication: Gastrooesophageal reflux disease
     Route: 065
     Dates: start: 20250510, end: 20250620

REACTIONS (1)
  - Hyperchlorhydria [Recovered/Resolved]
